FAERS Safety Report 11265681 (Version 1)
Quarter: 2015Q3

REPORT INFORMATION
  Report Type: Spontaneous
  Country: FR (occurrence: FR)
  Receive Date: 20150713
  Receipt Date: 20150713
  Transmission Date: 20151125
  Serious: Yes (Hospitalization)
  Sender: FDA-Public Use
  Company Number: FR-PFIZER INC-2015228271

PATIENT
  Age: 71 Year
  Sex: Female

DRUGS (7)
  1. TRAMADOL HYDROCHLORIDE. [Suspect]
     Active Substance: TRAMADOL HYDROCHLORIDE
     Dosage: 150 MG, UNK
     Dates: start: 20150607
  2. DIFFU K [Suspect]
     Active Substance: POTASSIUM CHLORIDE
     Dosage: UNK
     Dates: start: 20150607
  3. CACIT VITAMINE D3 [Suspect]
     Active Substance: CALCIUM CARBONATE\CHOLECALCIFEROL
     Dosage: UNK
     Dates: start: 20150607
  4. LYRICA [Suspect]
     Active Substance: PREGABALIN
     Dosage: 50 MG, UNK
     Dates: start: 20150607
  5. DAFALGAN [Suspect]
     Active Substance: ACETAMINOPHEN
     Dosage: 1 G, UNK
     Dates: start: 20150607
  6. VICTAN [Suspect]
     Active Substance: ETHYL LOFLAZEPATE
     Dosage: 2 MG, UNK
     Dates: start: 20150607
  7. TEMESTA [Suspect]
     Active Substance: LORAZEPAM
     Dosage: 1 MG, UNK
     Dates: start: 20150607

REACTIONS (3)
  - Disorientation [Recovered/Resolved]
  - Incoherent [Recovered/Resolved]
  - Somnolence [Recovered/Resolved]

NARRATIVE: CASE EVENT DATE: 20150607
